FAERS Safety Report 8886199 (Version 4)
Quarter: 2014Q4

REPORT INFORMATION
  Report Type: Spontaneous
  Country: US (occurrence: US)
  Receive Date: 20121105
  Receipt Date: 20141125
  Transmission Date: 20150529
  Serious: Yes (Hospitalization)
  Sender: FDA-Public Use
  Company Number: US-ASTRAZENECA-2012SE82924

PATIENT
  Age: 78 Year
  Sex: Female
  Weight: 49.9 kg

DRUGS (6)
  1. NEXIUM [Suspect]
     Active Substance: ESOMEPRAZOLE MAGNESIUM
     Indication: GASTROOESOPHAGEAL REFLUX DISEASE
     Route: 048
  2. NEXIUM [Suspect]
     Active Substance: ESOMEPRAZOLE MAGNESIUM
     Indication: GASTROOESOPHAGEAL REFLUX DISEASE
     Route: 048
     Dates: start: 2011, end: 20141117
  3. NEXIUM [Suspect]
     Active Substance: ESOMEPRAZOLE MAGNESIUM
     Indication: GASTROOESOPHAGEAL REFLUX DISEASE
     Route: 048
  4. NEXIUM [Suspect]
     Active Substance: ESOMEPRAZOLE MAGNESIUM
     Indication: GASTROOESOPHAGEAL REFLUX DISEASE
     Route: 048
     Dates: start: 2011, end: 20141117
  5. NEXIUM [Suspect]
     Active Substance: ESOMEPRAZOLE MAGNESIUM
     Indication: GASTROOESOPHAGEAL REFLUX DISEASE
     Route: 048
  6. NEXIUM [Suspect]
     Active Substance: ESOMEPRAZOLE MAGNESIUM
     Indication: GASTROOESOPHAGEAL REFLUX DISEASE
     Route: 048

REACTIONS (12)
  - Malaise [Unknown]
  - Oesophageal disorder [Not Recovered/Not Resolved]
  - Gastrointestinal disorder [Unknown]
  - Gastrointestinal pain [Not Recovered/Not Resolved]
  - Irritable bowel syndrome [Unknown]
  - Sinus headache [Unknown]
  - Intentional product misuse [Unknown]
  - Diverticulitis [Unknown]
  - Drug dose omission [Unknown]
  - Hiatus hernia [Unknown]
  - Hypoaesthesia [Unknown]
  - Gastritis [Unknown]

NARRATIVE: CASE EVENT DATE: 201404
